FAERS Safety Report 12517795 (Version 1)
Quarter: 2016Q2

REPORT INFORMATION
  Report Type: Spontaneous
  Country: RU (occurrence: RU)
  Receive Date: 20160630
  Receipt Date: 20160630
  Transmission Date: 20160815
  Serious: No
  Sender: FDA-Public Use
  Company Number: RU-FTV20160520-01

PATIENT
  Age: 35 Year
  Sex: Female

DRUGS (1)
  1. FACTIVE [Suspect]
     Active Substance: GEMIFLOXACIN MESYLATE
     Indication: BRONCHITIS
     Route: 048
     Dates: start: 20150901

REACTIONS (2)
  - Rash [Unknown]
  - Pruritus [Unknown]
